FAERS Safety Report 12709504 (Version 1)
Quarter: 2016Q3

REPORT INFORMATION
  Report Type: Spontaneous
  Country: US (occurrence: None)
  Receive Date: 20160901
  Receipt Date: 20160901
  Transmission Date: 20161109
  Serious: Yes (Life-Threatening, Hospitalization)
  Sender: FDA-Public Use
  Company Number: None

PATIENT
  Age: 66 Year
  Sex: Male
  Weight: 90 kg

DRUGS (1)
  1. DOLUTEGRAVIR [Suspect]
     Active Substance: DOLUTEGRAVIR
     Indication: DIABETES MELLITUS
     Route: 048
     Dates: start: 20150617

REACTIONS (3)
  - Confusional state [None]
  - Hyperglycaemia [None]
  - Sedation [None]

NARRATIVE: CASE EVENT DATE: 20150823
